FAERS Safety Report 5071505-8 (Version None)
Quarter: 2006Q3

REPORT INFORMATION
  Report Type: 
  Country: None (occurrence: None)
  Receive Date: 20060801
  Receipt Date: 20060727
  Transmission Date: 20061208
  Serious: Yes (Hospitalization)
  Sender: FDA-Public Use
  Company Number: 2006BI007887

PATIENT
  Age: 61 Year
  Sex: Female
  Weight: 65.318 kg

DRUGS (6)
  1. AVONEX [Suspect]
     Indication: MULTIPLE SCLEROSIS
     Dosage: 0.5 MG
     Dates: start: 20060421
  2. AXID [Concomitant]
  3. DITROPAN XL [Concomitant]
  4. PROVIGIL [Concomitant]
  5. FLONASE [Concomitant]
  6. PERCOCET [Concomitant]

REACTIONS (3)
  - CELLULITIS [None]
  - INJECTION SITE REACTION [None]
  - OEDEMA PERIPHERAL [None]
